FAERS Safety Report 6883321-2 (Version None)
Quarter: 2010Q3

REPORT INFORMATION
  Report Type: 
  Country: None (occurrence: None)
  Receive Date: 20100727
  Receipt Date: 20071004
  Transmission Date: 20110219
  Serious: Yes (Hospitalization, Other)
  Sender: FDA-Public Use
  Company Number: US-PFIZER INC-2006112427

PATIENT
  Sex: Male
  Weight: 92.5 kg

DRUGS (9)
  1. CELEBREX [Suspect]
     Indication: BACK PAIN
     Dates: start: 20020301
  2. CELEBREX [Suspect]
     Indication: NECK PAIN
  3. VIOXX [Suspect]
     Indication: PAIN
     Dates: start: 20020101
  4. VIOXX [Suspect]
     Indication: SURGERY
  5. CYCLOBENZAPRINE [Concomitant]
     Indication: PAIN
     Dates: start: 19990302, end: 20021101
  6. FLEXERIL [Concomitant]
     Indication: PAIN
     Dates: start: 20000803, end: 20021101
  7. HYDROCODONE BITARTRATE [Concomitant]
     Indication: PAIN
     Dates: start: 20020305, end: 20050331
  8. APAP TAB [Concomitant]
     Indication: PAIN
     Dates: start: 20020305, end: 20050331
  9. PERCOCET [Concomitant]
     Indication: PAIN
     Dates: start: 19990305, end: 20021001

REACTIONS (1)
  - CEREBROVASCULAR ACCIDENT [None]
